FAERS Safety Report 6533960 (Version 2)
Quarter: 2013Q2

REPORT INFORMATION
  Report Type: Spontaneous
  Country: US (occurrence: US)
  Receive Date: 20071130
  Receipt Date: 20130604
  Transmission Date: 20140414
  Serious: No
  Sender: FDA-Public Use
  Company Number: US200709001622

PATIENT
  Age: 71 Year
  Sex: Female
  Weight: 72.56 kg

DRUGS (15)
  1. BYETTA PEN DISPOSABLE [Suspect]
     Indication: INSULIN-REQUIRING TYPE 2 DIABETES MELLITUS
     Dosage: DOSE INCREASED:10MCG,SQ,BID
     Route: 058
     Dates: start: 200702
  2. BYETTA PEN DISPOSABLE [Suspect]
     Indication: INSULIN-REQUIRING TYPE 2 DIABETES MELLITUS
     Route: 058
     Dates: start: 200703
  3. EXENATIDE 5MCG PEN, DISPOSABLE DEVICE [Concomitant]
  4. EXENATIDE 10MCG PEN, DISPOSABLE DEVICE [Concomitant]
  5. LISPRO NPL [Concomitant]
     Indication: INSULIN-REQUIRING TYPE 2 DIABETES MELLITUS
     Dates: end: 20070907
  6. LISPRO NPL [Concomitant]
     Indication: INSULIN-REQUIRING TYPE 2 DIABETES MELLITUS
     Dates: end: 20070907
  7. LISPRO NPL [Concomitant]
     Indication: INSULIN-REQUIRING TYPE 2 DIABETES MELLITUS
     Dates: start: 20070908
  8. LISPRO NPL [Concomitant]
     Indication: INSULIN-REQUIRING TYPE 2 DIABETES MELLITUS
     Dates: start: 20070908
  9. GLUCOPHAGE [Concomitant]
     Indication: DIABETES MELLITUS
  10. GLYBURIDE [Concomitant]
     Indication: DIABETES MELLITUS
  11. DIGOXIN [Concomitant]
  12. HCTZ [Concomitant]
  13. LEVEMIR [Concomitant]
  14. METFORMIN [Concomitant]
  15. HUMALOG [Concomitant]

REACTIONS (6)
  - Gait disturbance [Recovered/Resolved]
  - Drug effect incomplete [Not Recovered/Not Resolved]
  - Blood glucose decreased [Recovered/Resolved]
  - Tremor [Recovered/Resolved]
  - Chronic obstructive pulmonary disease [Not Recovered/Not Resolved]
  - Skin mass [Not Recovered/Not Resolved]
